FAERS Safety Report 9891364 (Version 1)
Quarter: 2014Q1

REPORT INFORMATION
  Report Type: Spontaneous
  Country: US (occurrence: US)
  Receive Date: 20140212
  Receipt Date: 20140212
  Transmission Date: 20141002
  Serious: No
  Sender: FDA-Public Use
  Company Number: US-PFIZER INC-2014037378

PATIENT
  Age: 61 Year
  Sex: Male
  Weight: 76.19 kg

DRUGS (2)
  1. LYRICA [Suspect]
     Indication: BACK PAIN
     Dosage: 75 MG, 4X/DAY
     Dates: end: 20140127
  2. LYRICA [Suspect]
     Indication: PAIN IN EXTREMITY
     Dosage: 75 MG, 4X/DAY
     Dates: start: 20140131

REACTIONS (7)
  - Insomnia [Unknown]
  - Headache [Unknown]
  - Anxiety [Unknown]
  - Hyperhidrosis [Unknown]
  - Diarrhoea [Unknown]
  - Feeling cold [Unknown]
  - Back pain [Unknown]
